FAERS Safety Report 5154251-1 (Version None)
Quarter: 2006Q4

REPORT INFORMATION
  Report Type: 
  Country: None (occurrence: None)
  Receive Date: 20061120
  Receipt Date: 20060914
  Transmission Date: 20070319
  Serious: Yes (Other)
  Sender: FDA-Public Use
  Company Number: US-ELI_LILLY_AND_COMPANY-US200609003995

PATIENT
  Age: 10 Year
  Sex: Female
  Weight: 32.199 kg

DRUGS (1)
  1. STRATTERA [Suspect]
     Dosage: 60 MG, UNK
     Route: 048
     Dates: start: 20050323, end: 20060915

REACTIONS (5)
  - ALANINE AMINOTRANSFERASE INCREASED [None]
  - ASPARTATE AMINOTRANSFERASE INCREASED [None]
  - BLOOD COUNT ABNORMAL [None]
  - INFLUENZA LIKE ILLNESS [None]
  - MALAISE [None]
